FAERS Safety Report 6655216-0 (Version None)
Quarter: 2010Q1

REPORT INFORMATION
  Report Type: 
  Country: None (occurrence: None)
  Receive Date: 20100324
  Receipt Date: 20100311
  Transmission Date: 20100710
  Serious: Yes (Hospitalization)
  Sender: FDA-Public Use
  Company Number: SPV1-2010-00484

PATIENT
  Age: 42 Year
  Sex: Male

DRUGS (1)
  1. ELAPRASE [Suspect]
     Indication: MUCOPOLYSACCHARIDOSIS II
     Dosage: 7 DF, 1X/WEEK, IV DRIP
     Route: 041
     Dates: start: 20061106

REACTIONS (1)
  - ASPIRATION [None]
